FAERS Safety Report 11192782 (Version 1)
Quarter: 2015Q2

REPORT INFORMATION
  Report Type: Other
  Country: CA (occurrence: CA)
  Receive Date: 20150616
  Receipt Date: 20150616
  Transmission Date: 20150821
  Serious: Yes (Other)
  Sender: FDA-Public Use
  Company Number: CA-APOTEX-2015AP009862

PATIENT
  Sex: Male

DRUGS (1)
  1. APO-FENO-MICRO [Suspect]
     Active Substance: FENOFIBRATE
     Indication: PRODUCT USED FOR UNKNOWN INDICATION
     Dosage: 200 MG, UNK
     Route: 065

REACTIONS (3)
  - Vision blurred [Unknown]
  - Muscle disorder [Unknown]
  - Urinary tract disorder [Unknown]
